FAERS Safety Report 19003941 (Version 3)
Quarter: 2021Q2

REPORT INFORMATION
  Report Type: Spontaneous
  Country: AU (occurrence: AU)
  Receive Date: 20210313
  Receipt Date: 20210512
  Transmission Date: 20210717
  Serious: Yes (Other)
  Sender: FDA-Public Use
  Company Number: AU-ABBVIE-21K-008-3807066-00

PATIENT
  Age: 60 Year
  Sex: Male

DRUGS (15)
  1. CALCIPOTRIENE AND BETAMETHASONE DIPROPIONATE [Suspect]
     Active Substance: BETAMETHASONE DIPROPIONATE\CALCIPOTRIENE
     Indication: PRODUCT USED FOR UNKNOWN INDICATION
     Route: 061
  2. ALENDRONATE SODIUM. [Suspect]
     Active Substance: ALENDRONATE SODIUM
     Indication: PRODUCT USED FOR UNKNOWN INDICATION
     Route: 065
  3. SULFASALAZINE. [Suspect]
     Active Substance: SULFASALAZINE
     Indication: PRODUCT USED FOR UNKNOWN INDICATION
     Route: 065
  4. HUMIRA [Suspect]
     Active Substance: ADALIMUMAB
     Indication: PSORIASIS
  5. HUMIRA [Suspect]
     Active Substance: ADALIMUMAB
     Indication: PSORIATIC ARTHROPATHY
     Route: 058
  6. MELOXICAM. [Suspect]
     Active Substance: MELOXICAM
     Indication: PRODUCT USED FOR UNKNOWN INDICATION
     Route: 065
  7. SECUKINUMAB. [Suspect]
     Active Substance: SECUKINUMAB
     Indication: PRODUCT USED FOR UNKNOWN INDICATION
     Route: 065
     Dates: end: 201812
  8. SECUKINUMAB. [Suspect]
     Active Substance: SECUKINUMAB
     Route: 065
  9. CYCLOSPORINE. [Suspect]
     Active Substance: CYCLOSPORINE
     Indication: PRODUCT USED FOR UNKNOWN INDICATION
     Route: 065
  10. DOXYCYCLINE. [Suspect]
     Active Substance: DOXYCYCLINE
     Indication: PRODUCT USED FOR UNKNOWN INDICATION
     Route: 065
  11. METHOTREXATE. [Suspect]
     Active Substance: METHOTREXATE
     Indication: PRODUCT USED FOR UNKNOWN INDICATION
     Route: 065
  12. PREDNISONE. [Suspect]
     Active Substance: PREDNISONE
     Indication: ARTHRITIS
     Route: 048
  13. ARAVA [Suspect]
     Active Substance: LEFLUNOMIDE
     Indication: ARTHRITIS
     Route: 065
     Dates: end: 201512
  14. HYDROXYCHLOROQUINE SULPHATE [Suspect]
     Active Substance: HYDROXYCHLOROQUINE
     Indication: PRODUCT USED FOR UNKNOWN INDICATION
     Route: 065
  15. ETANERCEPT [Suspect]
     Active Substance: ETANERCEPT
     Indication: PRODUCT USED FOR UNKNOWN INDICATION
     Route: 065

REACTIONS (37)
  - Uveitis [Unknown]
  - Psoriatic arthropathy [Unknown]
  - Granulomatous dermatitis [Unknown]
  - Actinic keratosis [Unknown]
  - Folliculitis [Recovering/Resolving]
  - Liver function test abnormal [Unknown]
  - Osteoporosis [Unknown]
  - Psoriasis [Unknown]
  - Heavy exposure to ultraviolet light [Unknown]
  - Pain [Recovering/Resolving]
  - Back pain [Recovering/Resolving]
  - Squamous cell carcinoma [Unknown]
  - Mobility decreased [Recovering/Resolving]
  - Nasal congestion [Unknown]
  - Arthritis [Unknown]
  - Joint effusion [Unknown]
  - Drug ineffective [Unknown]
  - Autoimmune hepatitis [Unknown]
  - Granuloma annulare [Recovering/Resolving]
  - Loose body in joint [Unknown]
  - Adverse drug reaction [Unknown]
  - Oropharyngeal pain [Unknown]
  - Diarrhoea [Unknown]
  - Synovial cyst [Unknown]
  - Synovitis [Unknown]
  - Viral infection [Unknown]
  - Rash [Not Recovered/Not Resolved]
  - Cutaneous sarcoidosis [Unknown]
  - Lupus-like syndrome [Unknown]
  - Papule [Unknown]
  - Skin lesion [Unknown]
  - Skin infection [Unknown]
  - Furuncle [Unknown]
  - Rosacea [Unknown]
  - Acanthosis [Unknown]
  - Pustule [Unknown]
  - Skin exfoliation [Unknown]

NARRATIVE: CASE EVENT DATE: 2003
